FAERS Safety Report 15611601 (Version 1)
Quarter: 2018Q4

REPORT INFORMATION
  Report Type: Spontaneous
  Country: GB (occurrence: GB)
  Receive Date: 20181113
  Receipt Date: 20181113
  Transmission Date: 20190205
  Serious: Yes (Other)
  Sender: FDA-Public Use
  Company Number: GB-TORRENT-00003879

PATIENT
  Age: 38 Year
  Sex: Female

DRUGS (3)
  1. PROPRANOLOL [Concomitant]
     Active Substance: PROPRANOLOL HYDROCHLORIDE
     Indication: PRODUCT USED FOR UNKNOWN INDICATION
  2. QUETIAPINE. [Suspect]
     Active Substance: QUETIAPINE
     Indication: DEPRESSION
  3. SERTRALINE [Interacting]
     Active Substance: SERTRALINE HYDROCHLORIDE
     Indication: DEPRESSION

REACTIONS (2)
  - Drug interaction [Unknown]
  - Restless legs syndrome [Recovered/Resolved]
